FAERS Safety Report 18694481 (Version 1)
Quarter: 2020Q4

REPORT INFORMATION
  Report Type: Spontaneous
  Country: US (occurrence: US)
  Receive Date: 20201231
  Receipt Date: 20201231
  Transmission Date: 20210114
  Serious: Yes (Hospitalization, Other)
  Sender: FDA-Public Use
  Company Number: None

PATIENT
  Age: 49 Year
  Sex: Female
  Weight: 90.8 kg

DRUGS (6)
  1. OMEPRAZOLE. [Concomitant]
     Active Substance: OMEPRAZOLE
  2. CETUXIMAB. [Suspect]
     Active Substance: CETUXIMAB
     Indication: COLORECTAL CANCER
     Route: 042
  3. CETIRIZINE [Concomitant]
     Active Substance: CETIRIZINE HYDROCHLORIDE
  4. ESTRADIOL. [Concomitant]
     Active Substance: ESTRADIOL
     Dates: start: 20170314
  5. FLUOROURACIL. [Concomitant]
     Active Substance: FLUOROURACIL
     Dates: start: 20200801
  6. IRINOTECAN [Concomitant]
     Active Substance: IRINOTECAN
     Dates: start: 20200801

REACTIONS (7)
  - Lip swelling [None]
  - Pruritus [None]
  - Diarrhoea [None]
  - Urticaria [None]
  - Type IV hypersensitivity reaction [None]
  - Infusion related reaction [None]
  - Asthenia [None]

NARRATIVE: CASE EVENT DATE: 20201209
